FAERS Safety Report 16688129 (Version 1)
Quarter: 2019Q3

REPORT INFORMATION
  Report Type: Report from Study
  Country: US (occurrence: US)
  Receive Date: 20190809
  Receipt Date: 20190809
  Transmission Date: 20191004
  Serious: No
  Sender: FDA-Public Use
  Company Number: PHEH2019US032481

PATIENT
  Age: 48 Year
  Sex: Female

DRUGS (1)
  1. GLATOPA [Suspect]
     Active Substance: GLATIRAMER ACETATE
     Indication: MULTIPLE SCLEROSIS RELAPSE
     Dosage: 40 MG, TIW
     Route: 058
     Dates: start: 20190703, end: 20190805

REACTIONS (3)
  - Injection site pain [Unknown]
  - Injection site mass [Unknown]
  - Flushing [Unknown]

NARRATIVE: CASE EVENT DATE: 20190703
